FAERS Safety Report 6529998-2 (Version None)
Quarter: 2010Q1

REPORT INFORMATION
  Report Type: 
  Country: None (occurrence: None)
  Receive Date: 20100104
  Receipt Date: 20091221
  Transmission Date: 20100710
  Serious: Yes (Other)
  Sender: FDA-Public Use
  Company Number: 1-21132089

PATIENT
  Age: 65 Year
  Sex: Female
  Weight: 50.8029 kg

DRUGS (2)
  1. NYSTATIN [Suspect]
     Indication: ORAL FUNGAL INFECTION
     Dosage: UNK, ONCE, ORAL
     Route: 048
     Dates: start: 20091220, end: 20091220
  2. NYSTATIN [Suspect]
     Indication: ORAL FUNGAL INFECTION
     Dosage: UNK,UNK, ORAL
     Route: 048
     Dates: start: 20091220

REACTIONS (7)
  - DRUG DISPENSING ERROR [None]
  - INCORRECT ROUTE OF DRUG ADMINISTRATION [None]
  - LIP BLISTER [None]
  - LIP PAIN [None]
  - LIP SWELLING [None]
  - ORAL PAIN [None]
  - PRODUCT TASTE ABNORMAL [None]
